FAERS Safety Report 24406532 (Version 7)
Quarter: 2025Q2

REPORT INFORMATION
  Report Type: Spontaneous
  Country: US (occurrence: US)
  Receive Date: 20241007
  Receipt Date: 20250403
  Transmission Date: 20250717
  Serious: No
  Sender: PFIZER
  Company Number: US-PFIZER INC-202400267626

PATIENT
  Age: 15 Year
  Sex: Male
  Weight: 68.04 kg

DRUGS (4)
  1. GENOTROPIN [Suspect]
     Active Substance: SOMATROPIN
     Indication: Short stature
     Dosage: 2.8 MG, ALTERNATE DAY (ALTERNATING 2.8MG AND 3.0 MG DAILY)
  2. GENOTROPIN [Suspect]
     Active Substance: SOMATROPIN
     Indication: Growth hormone deficiency
     Dosage: 3.0 MG, ALTERNATE DAY (ALTERNATING 2.8MG AND 3.0 MG DAILY)
  3. GENOTROPIN [Suspect]
     Active Substance: SOMATROPIN
     Indication: Hypopituitarism
  4. GENOTROPIN [Suspect]
     Active Substance: SOMATROPIN
     Route: 058

REACTIONS (2)
  - Device leakage [Unknown]
  - Drug dose omission by device [Unknown]
